FAERS Safety Report 6888235-X (Version None)
Quarter: 2010Q3

REPORT INFORMATION
  Report Type: 
  Country: None (occurrence: None)
  Receive Date: 20100730
  Receipt Date: 20100722
  Transmission Date: 20110219
  Serious: Yes (Other)
  Sender: FDA-Public Use
  Company Number: GXKR2010PL08232

PATIENT
  Sex: Female

DRUGS (8)
  1. METHOTREXATE [Suspect]
     Indication: RHEUMATOID ARTHRITIS
     Dosage: 15 MG, 1 YEAR
     Route: 048
     Dates: start: 20100521, end: 20100630
  2. FOLIC ACID [Concomitant]
     Route: 048
  3. ALFACALCIDOL [Concomitant]
  4. ARAVA [Concomitant]
  5. SOL MEDROL [Concomitant]
  6. SULFASALAZINE [Concomitant]
  7. CALPEROS [Concomitant]
  8. ORTANOL [Concomitant]

REACTIONS (6)
  - BLOOD PRESSURE INCREASED [None]
  - EPISTAXIS [None]
  - ERYTHEMA [None]
  - NAUSEA [None]
  - SWELLING [None]
  - VOMITING [None]
